FAERS Safety Report 14993332 (Version 1)
Quarter: 2018Q2

REPORT INFORMATION
  Report Type: Spontaneous
  Country: ES (occurrence: ES)
  Receive Date: 20180610
  Receipt Date: 20180610
  Transmission Date: 20180711
  Serious: Yes (Other)
  Sender: FDA-Public Use
  Company Number: PHHY2018ES017901

PATIENT
  Age: 63 Year
  Sex: Male

DRUGS (2)
  1. OXALIPLATIN. [Suspect]
     Active Substance: OXALIPLATIN
     Indication: COLON CANCER STAGE IV
     Route: 065
  2. CAPECITABINE. [Suspect]
     Active Substance: CAPECITABINE
     Indication: COLON CANCER STAGE IV
     Route: 065

REACTIONS (6)
  - Mucosal inflammation [Unknown]
  - Diarrhoea [Unknown]
  - Stomatitis [Unknown]
  - Haematotoxicity [Unknown]
  - Colon cancer stage IV [Unknown]
  - Malignant neoplasm progression [Unknown]
